FAERS Safety Report 15007902 (Version 2)
Quarter: 2018Q3

REPORT INFORMATION
  Report Type: Spontaneous
  Country: FR (occurrence: FR)
  Receive Date: 20180613
  Receipt Date: 20180705
  Transmission Date: 20181010
  Serious: Yes (Other)
  Sender: FDA-Public Use
  Company Number: FR-MYLANLABS-2018M1039097

PATIENT
  Age: 62 Year
  Sex: Male

DRUGS (1)
  1. VENLAFAXINE [Suspect]
     Active Substance: VENLAFAXINE HYDROCHLORIDE
     Indication: DEPRESSIVE SYMPTOM
     Dosage: UNK

REACTIONS (2)
  - Drug ineffective [Unknown]
  - Suicide attempt [Unknown]

NARRATIVE: CASE EVENT DATE: 20140301
